FAERS Safety Report 8733410 (Version 4)
Quarter: 2012Q4

REPORT INFORMATION
  Report Type: 
  Country: BR (occurrence: BR)
  Receive Date: 20120821
  Receipt Date: 20121115
  Transmission Date: 20130627
  Serious: Yes (Other)
  Sender: FDA-Public Use
  Company Number: BR-US-EMD SERONO, INC.-7116543

PATIENT
  Age: 20 None
  Sex: Female

DRUGS (5)
  1. REBIF [Suspect]
     Indication: RELAPSING-REMITTING MULTIPLE SCLEROSIS
     Route: 058
     Dates: start: 20120113
  2. DIANE [Concomitant]
     Indication: PRODUCT USED FOR UNKNOWN INDICATION
  3. NAPROXENO (NAPROXEN) [Concomitant]
     Indication: PRODUCT USED FOR UNKNOWN INDICATION
  4. SUPRADYN [Concomitant]
     Indication: PRODUCT USED FOR UNKNOWN INDICATION
  5. SANDOMIGRAN [Concomitant]
     Indication: PRODUCT USED FOR UNKNOWN INDICATION

REACTIONS (5)
  - Labyrinthitis [Unknown]
  - Oropharyngeal pain [Not Recovered/Not Resolved]
  - Malaise [Unknown]
  - Anaemia [Not Recovered/Not Resolved]
  - Headache [Recovered/Resolved]
